FAERS Safety Report 4603003-7 (Version None)
Quarter: 2005Q1

REPORT INFORMATION
  Report Type: 
  Country: None (occurrence: None)
  Receive Date: 20050309
  Receipt Date: 20050216
  Transmission Date: 20050727
  Serious: Yes (Hospitalization)
  Sender: FDA-Public Use
  Company Number: JP-ROCHE-395548

PATIENT
  Age: 75 Year
  Sex: Male
  Weight: 58 kg

DRUGS (6)
  1. PANALDINE [Suspect]
     Dosage: AFTER PERCUTANEOUS TRANSLUMINAL CORONARY ANGIOPLASTY SECONDARY INDICATION: DUE TO MYOCARDIAL INFARC+
     Route: 048
     Dates: start: 20050120, end: 20050131
  2. FAMOTIDINE [Concomitant]
     Dosage: TRADE NAME WAS REPORTED AS GASTER D
     Route: 048
     Dates: start: 19990913
  3. CYANOCOBALAMIN [Concomitant]
     Route: 048
     Dates: start: 20010213
  4. ARICEPT [Concomitant]
     Route: 048
     Dates: start: 20030906
  5. RENIVACE [Concomitant]
     Route: 048
     Dates: start: 20050120
  6. ASPIRIN [Concomitant]
     Route: 048
     Dates: start: 20050120

REACTIONS (6)
  - EYE MOVEMENT DISORDER [None]
  - EYE SWELLING [None]
  - GENERALISED ERYTHEMA [None]
  - LOCAL SWELLING [None]
  - PYREXIA [None]
  - TOXIC SKIN ERUPTION [None]
